FAERS Safety Report 11058985 (Version 1)
Quarter: 2015Q2

REPORT INFORMATION
  Report Type: Spontaneous
  Country: JP (occurrence: JP)
  Receive Date: 20150423
  Receipt Date: 20150423
  Transmission Date: 20150821
  Serious: Yes (Other)
  Sender: FDA-Public Use
  Company Number: JP-PFIZER INC-2015131488

PATIENT

DRUGS (1)
  1. AZULFIDINE EN-TABS [Suspect]
     Active Substance: SULFASALAZINE
     Route: 048

REACTIONS (2)
  - Gait disturbance [Unknown]
  - Wrong technique in drug usage process [Unknown]
